FAERS Safety Report 19234126 (Version 1)
Quarter: 2021Q2

REPORT INFORMATION
  Report Type: Spontaneous
  Country: US (occurrence: US)
  Receive Date: 20210508
  Receipt Date: 20210508
  Transmission Date: 20210717
  Serious: No
  Sender: FDA-Public Use
  Company Number: US-TEVA-2021-US-1901856

PATIENT
  Age: 71 Year
  Sex: Female

DRUGS (1)
  1. EPINEPHRINE. [Suspect]
     Active Substance: EPINEPHRINE
     Route: 065

REACTIONS (2)
  - Hypertension [Unknown]
  - Tremor [Unknown]
